FAERS Safety Report 6110440-0 (Version None)
Quarter: 2009Q1

REPORT INFORMATION
  Report Type: 
  Country: None (occurrence: None)
  Receive Date: 20090310
  Receipt Date: 20090225
  Transmission Date: 20090719
  Serious: Yes (Other)
  Sender: FDA-Public Use
  Company Number: GB-ELI_LILLY_AND_COMPANY-GB200902006865

PATIENT
  Age: 15 Year
  Sex: Female
  Weight: 73 kg

DRUGS (6)
  1. OLANZAPINE [Suspect]
     Indication: ABNORMAL BEHAVIOUR
     Dosage: 20 MG, UNK
     Route: 048
     Dates: start: 20081125, end: 20090202
  2. CHLORPROMAZINE [Concomitant]
     Indication: ABNORMAL BEHAVIOUR
     Dosage: 200 MG, UNK
     Route: 048
     Dates: start: 20080901, end: 20081101
  3. DIAZEPAM [Concomitant]
     Indication: ABNORMAL BEHAVIOUR
     Dosage: 35 MG, UNK
     Route: 048
     Dates: start: 20081201
  4. FYBOGEL [Concomitant]
     Dosage: 1 D/F, 2/D
     Route: 048
     Dates: start: 20081201
  5. VALPROATE SODIUM [Concomitant]
     Indication: AFFECTIVE DISORDER
     Dosage: 400 MG, 2/D
     Route: 048
     Dates: start: 20080901, end: 20081101
  6. ZOPICLONE [Concomitant]
     Indication: SLEEP DISORDER
     Dosage: 7.5 MG, DAILY (1/D)
     Route: 048
     Dates: start: 20080901

REACTIONS (1)
  - NEUTROPENIA [None]
